FAERS Safety Report 13921280 (Version 1)
Quarter: 2017Q3

REPORT INFORMATION
  Report Type: Spontaneous
  Country: US (occurrence: US)
  Receive Date: 20170830
  Receipt Date: 20170830
  Transmission Date: 20171127
  Serious: Yes (Death, Hospitalization)
  Sender: FDA-Public Use
  Company Number: US-BAYER-2017-159239

PATIENT
  Age: 19 Year
  Sex: Female

DRUGS (5)
  1. ANTICOAGULANT CIT PHOS DEX ADENINE [Concomitant]
     Active Substance: CITRIC ACID MONOHYDRATE\DEXTROSE\SODIUM CITRATE\SODIUM PHOSPHATE, MONOBASIC
     Dosage: UNK
  2. ACETYLSALICYLIC ACID({=100 MG) [Suspect]
     Active Substance: ASPIRIN
     Indication: RHEUMATIC HEART DISEASE
     Dosage: 80 MG, QD
  3. APIXABAN [Concomitant]
     Active Substance: APIXABAN
     Dosage: 5 MG, BID
  4. WARFARIN [Concomitant]
     Active Substance: WARFARIN
     Dosage: UNK
  5. BENZYLPENICILLIN [Suspect]
     Active Substance: PENICILLIN G
     Dosage: UNK

REACTIONS (6)
  - Cerebrovascular accident [Fatal]
  - Septic shock [Fatal]
  - Cerebral infarction [None]
  - Upper gastrointestinal haemorrhage [None]
  - Pneumonia aspiration [Fatal]
  - Drug ineffective [None]
